FAERS Safety Report 11279712 (Version 3)
Quarter: 2015Q4

REPORT INFORMATION
  Report Type: Spontaneous
  Country: US (occurrence: US)
  Receive Date: 20150717
  Receipt Date: 20151030
  Transmission Date: 20160304
  Serious: Yes (Hospitalization)
  Sender: FDA-Public Use
  Company Number: US-ACTELION-A-US2015-120952

PATIENT
  Age: 80 Year
  Sex: Female

DRUGS (2)
  1. ADCIRCA [Concomitant]
     Active Substance: TADALAFIL
  2. VELETRI [Suspect]
     Active Substance: EPOPROSTENOL
     Indication: PULMONARY HYPERTENSION
     Dosage: 32 NG/KG, PER MIN
     Route: 042
     Dates: start: 20141222

REACTIONS (4)
  - Intestinal resection [Unknown]
  - Gastrointestinal disorder [Unknown]
  - Volvulus [Unknown]
  - Mechanical ventilation [Unknown]
